FAERS Safety Report 6938353-2 (Version None)
Quarter: 2010Q3

REPORT INFORMATION
  Report Type: 
  Country: None (occurrence: None)
  Receive Date: 20100824
  Receipt Date: 20100812
  Transmission Date: 20110219
  Serious: Yes (Hospitalization)
  Sender: FDA-Public Use
  Company Number: AU-PFIZER INC-2010094094

PATIENT
  Age: 89 Year
  Sex: Female
  Weight: 45 kg

DRUGS (21)
  1. LYRICA [Suspect]
     Indication: NEURALGIA
     Dosage: 75 MG, 2X/DAY
     Route: 048
     Dates: start: 20100430
  2. ASPIRIN [Concomitant]
     Dosage: 100 MG, 1X/DAY
     Route: 048
  3. CALTRATE [Concomitant]
     Dosage: 1500 MG, 2X/DAY
     Route: 048
  4. AMIODARONE HYDROCHLORIDE [Concomitant]
     Dosage: 200 MG, 1X/DAY
     Route: 048
  5. PERINDOPRIL ERBUMINE [Concomitant]
     Dosage: 2.5 MG, 1X/DAY
     Route: 048
  6. DI-GESIC [Concomitant]
     Dosage: 32.5/325MG TWO THREE TIMES DAILY AS REQUIRED
     Route: 048
  7. DORYX [Concomitant]
     Dosage: 50 MG, 1X/DAY
     Route: 048
  8. ENDEP [Concomitant]
     Dosage: 25 MG, 1X/DAY AT NIGHT
     Route: 048
  9. GAVISCON [Concomitant]
     Dosage: 20 ML, 1X/DAY AT NIGHT
     Route: 048
  10. INDERAL [Concomitant]
     Dosage: 20 MG, 2X/DAY
     Route: 048
  11. LANOXIN [Concomitant]
     Dosage: 125 UG, 1X/DAY
  12. LASIX [Concomitant]
     Dosage: 40MG IN THE MORNING
     Route: 048
  13. PRILOSEC [Concomitant]
     Dosage: 20 MG, 1X/DAY
     Route: 048
  14. NULYTELY [Concomitant]
     Dosage: 1 SACHET DAILY
     Route: 048
  15. LEVOTHYROXINE SODIUM [Concomitant]
     Dosage: 50 UG, 1X/DAY
     Route: 048
  16. PANAMAX [Concomitant]
     Dosage: 1000 MG, 3X/DAY
     Route: 048
  17. SERETIDE [Concomitant]
     Dosage: 500UG/50UG TWICE DAILY
     Route: 055
  18. SLOW-K [Concomitant]
     Dosage: 600 MG, 1X/DAY AT NIGHT
     Route: 048
  19. TRAMAL [Concomitant]
     Dosage: 50 MG, TWO TIMES DAILY AS NEEDED
     Route: 048
  20. VENTOLIN [Concomitant]
     Dosage: 300UG FOUR TIMES DAILY AS NEEDED
     Route: 055
  21. XANAX [Concomitant]
     Dosage: 0.5 MG AT NIGHT AS NEEDED
     Route: 048

REACTIONS (7)
  - BALANCE DISORDER [None]
  - CONTUSION [None]
  - DISORIENTATION [None]
  - DIZZINESS [None]
  - FALL [None]
  - LACERATION [None]
  - SEDATION [None]
